FAERS Safety Report 9175497 (Version 2)
Quarter: 2013Q2

REPORT INFORMATION
  Report Type: Report from Study
  Country: DE (occurrence: DE)
  Receive Date: 20130320
  Receipt Date: 20130422
  Transmission Date: 20140414
  Serious: Yes (Death, Hospitalization)
  Sender: FDA-Public Use
  Company Number: DE-ROCHE-1203796

PATIENT
  Age: 70 Year
  Sex: Male
  Weight: 103 kg

DRUGS (4)
  1. BEVACIZUMAB [Suspect]
     Indication: COLORECTAL CANCER METASTATIC
     Route: 042
     Dates: start: 20130124, end: 20130124
  2. FOLINIC ACID [Suspect]
     Indication: COLORECTAL CANCER
     Dosage: 24 1 2013
     Route: 042
     Dates: start: 20130124, end: 20130124
  3. OXALIPLATIN [Suspect]
     Indication: COLORECTAL CANCER
     Route: 042
     Dates: start: 20130124, end: 20130124
  4. 5-FU [Suspect]
     Indication: COLORECTAL CANCER
     Route: 042
     Dates: start: 20130124, end: 20130124

REACTIONS (3)
  - Jaundice [Fatal]
  - Neoplasm malignant [Fatal]
  - Metastases to central nervous system [Recovered/Resolved]
